FAERS Safety Report 8138172 (Version 5)
Quarter: 2012Q4

REPORT INFORMATION
  Report Type: 
  Country: US (occurrence: US)
  Receive Date: 20110915
  Receipt Date: 20121019
  Transmission Date: 20130627
  Serious: Yes (Hospitalization, Other)
  Sender: FDA-Public Use
  Company Number: US-GLAXOSMITHKLINE-A0944658A

PATIENT
  Age: 63 Year
  Sex: Female
  Weight: 101.8 kg

DRUGS (10)
  1. AVANDIA [Suspect]
     Indication: DIABETES MELLITUS
     Dosage: 8MG Per day
     Route: 048
     Dates: start: 2003, end: 20080812
  2. INSULIN [Concomitant]
  3. GLIPIZIDE [Concomitant]
  4. PROTONIX [Concomitant]
  5. PREMARIN [Concomitant]
  6. GABAPENTIN [Concomitant]
  7. AMLODIPINE [Concomitant]
  8. TOPROL XL [Concomitant]
  9. SIMVASTATIN [Concomitant]
  10. DIOVAN [Concomitant]

REACTIONS (5)
  - Myocardial infarction [Recovering/Resolving]
  - Cardiac failure congestive [Unknown]
  - Ischaemic cardiomyopathy [Unknown]
  - Coronary artery disease [Unknown]
  - Palpitations [Unknown]
